FAERS Safety Report 25523750 (Version 1)
Quarter: 2025Q3

REPORT INFORMATION
  Report Type: Spontaneous
  Country: US (occurrence: None)
  Receive Date: 20250703
  Receipt Date: 20250703
  Transmission Date: 20251021
  Serious: Yes (unspecified)
  Sender: FDA-CTU
  Company Number: None

PATIENT
  Age: 37 Year
  Sex: Female

DRUGS (2)
  1. BOTOX COSMETIC [Suspect]
     Active Substance: ONABOTULINUMTOXINA
     Indication: Dystonia
     Dates: start: 20250702
  2. BOTOX COSMETIC [Suspect]
     Active Substance: ONABOTULINUMTOXINA
     Indication: Migraine

REACTIONS (6)
  - Dysarthria [None]
  - Dysphagia [None]
  - Nausea [None]
  - Skin burning sensation [None]
  - Somnolence [None]
  - Vision blurred [None]

NARRATIVE: CASE EVENT DATE: 20250702
